FAERS Safety Report 26145465 (Version 1)
Quarter: 2025Q4

REPORT INFORMATION
  Report Type: Spontaneous
  Country: US (occurrence: US)
  Receive Date: 20251211
  Receipt Date: 20251211
  Transmission Date: 20260117
  Serious: Yes (Hospitalization, Other)
  Sender: SIGMA TAU
  Company Number: US-LEADIANT BIOSCIENCES, INC.-2025LBI000268

PATIENT
  Age: 57 Year
  Sex: Female

DRUGS (4)
  1. ABELCET [Suspect]
     Active Substance: AMPHOTERICIN B\DIMYRISTOYLPHOSPHATIDYLCHOLINE, DL-\DIMYRISTOYLPHOSPHATIDYLGLYCEROL, DL-
     Indication: Cryptococcosis
     Dosage: 350 MILLIGRAM, QD
     Route: 042
  2. PREDNISONE [Suspect]
     Active Substance: PREDNISONE
     Indication: Immunosuppressant drug therapy
     Dosage: 5 MILLIGRAM, QD
     Route: 048
  3. TACROLIMUS [Suspect]
     Active Substance: TACROLIMUS
     Indication: Immunosuppressant drug therapy
     Dosage: 0.5 MILLIGRAM, QD
  4. GANCICLOVIR [Concomitant]
     Active Substance: GANCICLOVIR
     Indication: Evidence based treatment
     Dosage: 20 MILLIGRAM PER MILLILITRE, QW

REACTIONS (7)
  - Drug-induced liver injury [Unknown]
  - Cryptococcal fungaemia [Unknown]
  - Cytomegalovirus infection [Unknown]
  - Meningitis cryptococcal [Unknown]
  - Pneumonia cryptococcal [Unknown]
  - Endophthalmitis [Recovering/Resolving]
  - Eye infection toxoplasmal [Recovering/Resolving]
